FAERS Safety Report 6143106-1 (Version None)
Quarter: 2009Q2

REPORT INFORMATION
  Report Type: 
  Country: None (occurrence: None)
  Receive Date: 20090401
  Receipt Date: 20090401
  Transmission Date: 20091009
  Serious: Yes (Hospitalization)
  Sender: FDA-Public Use
  Company Number: None

PATIENT
  Age: 53 Year
  Sex: Female
  Weight: 91 kg

DRUGS (1)
  1. METHADONE HCL [Suspect]
     Indication: PAIN
     Dosage: 50 MG BID PO
     Route: 048
     Dates: start: 20090314, end: 20090317

REACTIONS (4)
  - CARDIO-RESPIRATORY ARREST [None]
  - CONFUSIONAL STATE [None]
  - RESPIRATORY DEPRESSION [None]
  - SEDATION [None]
